FAERS Safety Report 10170179 (Version 2)
Quarter: 2014Q2

REPORT INFORMATION
  Report Type: Spontaneous
  Country: CA (occurrence: CA)
  Receive Date: 20140513
  Receipt Date: 20140527
  Transmission Date: 20141212
  Serious: Yes (Death)
  Sender: FDA-Public Use
  Company Number: CA-CELGENEUS-028-POMAL-14051436

PATIENT
  Age: 71 Year
  Sex: Male

DRUGS (9)
  1. POMALYST [Suspect]
     Indication: PLASMA CELL MYELOMA
     Dosage: 4 MILLIGRAM
     Route: 048
     Dates: start: 20140403
  2. REVLIMID [Suspect]
     Indication: PLASMA CELL MYELOMA
     Dosage: 25 MILLIGRAM
     Route: 048
     Dates: start: 20130423
  3. REVLIMID [Suspect]
     Dosage: 10 MILLIGRAM
     Route: 048
     Dates: start: 20130718
  4. REVLIMID [Suspect]
     Dosage: 10 MILLIGRAM
     Route: 048
     Dates: start: 20140204
  5. REVLIMID [Suspect]
     Dosage: 10 MILLIGRAM
     Route: 048
     Dates: start: 20140304
  6. OXYCODONE [Concomitant]
     Indication: PRODUCT USED FOR UNKNOWN INDICATION
     Route: 065
  7. VINCRISTINE [Concomitant]
     Indication: PLASMA CELL MYELOMA
     Route: 065
  8. CYCLOPHOSPHAMIDE [Concomitant]
     Indication: PLASMA CELL MYELOMA
     Route: 065
  9. DEXAMETHASONE [Concomitant]
     Indication: PLASMA CELL MYELOMA
     Route: 065

REACTIONS (2)
  - Plasma cell myeloma [Fatal]
  - Therapeutic response decreased [Unknown]
